FAERS Safety Report 7710448-5 (Version None)
Quarter: 2011Q3

REPORT INFORMATION
  Report Type: 
  Country: None (occurrence: None)
  Receive Date: 20110825
  Receipt Date: 20110814
  Transmission Date: 20111222
  Serious: Yes (Death, Hospitalization)
  Sender: FDA-Public Use
  Company Number: PH-BAXTER-2011BH026673

PATIENT
  Age: 31 Year
  Sex: Male

DRUGS (1)
  1. DIANEAL [Suspect]
     Indication: PERITONEAL DIALYSIS
     Route: 033
     Dates: start: 20110530

REACTIONS (2)
  - CARDIO-RESPIRATORY ARREST [None]
  - GLOMERULONEPHRITIS CHRONIC [None]
